FAERS Safety Report 7787127-1 (Version None)
Quarter: 2011Q3

REPORT INFORMATION
  Report Type: 
  Country: None (occurrence: None)
  Receive Date: 20110927
  Receipt Date: 20110901
  Transmission Date: 20111222
  Serious: Yes (Hospitalization)
  Sender: FDA-Public Use
  Company Number: 2010GW000702

PATIENT
  Sex: Male

DRUGS (4)
  1. CLOTIAPINE (CLOTIAPINE) [Concomitant]
  2. ORPHENADRINE CITRATE [Suspect]
     Indication: PRODUCT USED FOR UNKNOWN INDICATION
     Dosage: 1000 MG;X1
     Route: 048
  3. PROMETHAZINE [Concomitant]
  4. CLOZAPINE [Concomitant]

REACTIONS (4)
  - TOXICITY TO VARIOUS AGENTS [None]
  - CONFUSIONAL STATE [None]
  - POISONING DELIBERATE [None]
  - INTENTIONAL OVERDOSE [None]
